FAERS Safety Report 6132746-1 (Version None)
Quarter: 2009Q1

REPORT INFORMATION
  Report Type: 
  Country: None (occurrence: None)
  Receive Date: 20090324
  Receipt Date: 20090324
  Transmission Date: 20090719
  Serious: Yes (Hospitalization)
  Sender: FDA-Public Use
  Company Number: None

PATIENT
  Sex: Female
  Weight: 85.45 kg

DRUGS (2)
  1. CARBOPLATIN [Suspect]
     Dosage: 644 MG
  2. TAXOL [Suspect]
     Dosage: 350 MG

REACTIONS (5)
  - CHEST DISCOMFORT [None]
  - ELECTROLYTE IMBALANCE [None]
  - HYPOKALAEMIA [None]
  - HYPOMAGNESAEMIA [None]
  - PARAESTHESIA [None]
